FAERS Safety Report 9589051 (Version 1)
Quarter: 2013Q4

REPORT INFORMATION
  Report Type: Spontaneous
  Country: US (occurrence: US)
  Receive Date: 20131003
  Receipt Date: 20131003
  Transmission Date: 20140711
  Serious: No
  Sender: FDA-Public Use
  Company Number: US-AMGEN-USASP2012068300

PATIENT
  Age: 19 Year
  Sex: Female

DRUGS (2)
  1. ENBREL [Suspect]
     Indication: JUVENILE IDIOPATHIC ARTHRITIS
     Dosage: 50 MG, QWK
     Dates: start: 20120601
  2. ENBREL [Suspect]
     Indication: JUVENILE IDIOPATHIC ARTHRITIS

REACTIONS (5)
  - Malaise [Not Recovered/Not Resolved]
  - Vomiting [Recovered/Resolved]
  - Cough [Not Recovered/Not Resolved]
  - Pyrexia [Not Recovered/Not Resolved]
  - Abdominal discomfort [Not Recovered/Not Resolved]
